FAERS Safety Report 22621853 (Version 1)
Quarter: 2023Q2

REPORT INFORMATION
  Report Type: Spontaneous
  Country: NL (occurrence: NL)
  Receive Date: 20230620
  Receipt Date: 20230620
  Transmission Date: 20230722
  Serious: Yes (Life-Threatening)
  Sender: FDA-Public Use
  Company Number: None

PATIENT
  Sex: Female
  Weight: 21 kg

DRUGS (1)
  1. METHYLPHENIDATE HYDROCHLORIDE [Suspect]
     Active Substance: METHYLPHENIDATE HYDROCHLORIDE
     Indication: Attention deficit hyperactivity disorder
     Dosage: 1 DOSAGE FORM, BID, 1X PER DAY 1
     Route: 065
     Dates: start: 20230403, end: 20230424

REACTIONS (3)
  - Intentional self-injury [Recovered/Resolved]
  - Suicidal ideation [Recovered/Resolved]
  - Product substitution issue [Unknown]
